FAERS Safety Report 22870909 (Version 7)
Quarter: 2023Q4

REPORT INFORMATION
  Report Type: Report from Study
  Country: NO (occurrence: None)
  Receive Date: 20230828
  Receipt Date: 20231018
  Transmission Date: 20240110
  Serious: Yes (Death, Hospitalization)
  Sender: FDA-Public Use
  Company Number: NO-ROCHE-3409176

PATIENT
  Age: 83 Year
  Sex: Female

DRUGS (17)
  1. RITUXIMAB [Suspect]
     Active Substance: RITUXIMAB
     Indication: Diffuse large B-cell lymphoma
     Dosage: DAY 1, CYCLE 1. 1400 MG S C OR 375 MG/M2 I. V. CYCLES 2-6 RECEIVED DOSE ON 27/JUL/2023
     Route: 042
     Dates: start: 20230503, end: 20230817
  2. POLATUZUMAB VEDOTIN [Suspect]
     Active Substance: POLATUZUMAB VEDOTIN
     Indication: Diffuse large B-cell lymphoma
     Dosage: DAY 1 CYCLES 1-6, RECEIVED DOSE ON 27/JUL/2023
     Route: 042
     Dates: start: 20230503, end: 20230817
  3. DOXORUBICIN [Suspect]
     Active Substance: DOXORUBICIN
     Indication: Diffuse large B-cell lymphoma
     Dosage: DAY 1, CYCLES 1-6, RECEIVED DOSE ON 27/JUL/2023
     Route: 042
     Dates: start: 20230503, end: 20230817
  4. PREDNISONE [Suspect]
     Active Substance: PREDNISONE
     Indication: Diffuse large B-cell lymphoma
     Dosage: DAYS 1-5, CYCLES 1-6, RECEIVED DOSE ON 31/JUL/2023
     Route: 048
     Dates: start: 20230503, end: 20230821
  5. CYCLOPHOSPHAMIDE [Suspect]
     Active Substance: CYCLOPHOSPHAMIDE
     Indication: Diffuse large B-cell lymphoma
     Dosage: 400 MG/M2 IV, DAY 1, CYCLES 1-6, RECEIVED DOSE ON 27/JUL/2023
     Route: 042
     Dates: start: 20230503, end: 20230817
  6. CIPRALEX [Concomitant]
     Active Substance: ESCITALOPRAM OXALATE
     Indication: Depression
  7. EZETIMIBE [Concomitant]
     Active Substance: EZETIMIBE
     Indication: Hypercholesterolaemia
  8. BACTRIM [Concomitant]
     Active Substance: SULFAMETHOXAZOLE\TRIMETHOPRIM
     Dosage: 160/800 MGX2
     Dates: start: 20230503
  9. VALACYCLOVIR HYDROCHLORIDE [Concomitant]
     Active Substance: VALACYCLOVIR HYDROCHLORIDE
     Dates: start: 20230503
  10. METOCLOPRAMIDE [Concomitant]
     Active Substance: METOCLOPRAMIDE
     Indication: Nausea
     Dates: start: 20230503
  11. LACTULOSE [Concomitant]
     Active Substance: LACTULOSE
     Indication: Constipation
  12. ACETAMINOPHEN [Concomitant]
     Active Substance: ACETAMINOPHEN
     Indication: Pain
  13. CODEINE [Concomitant]
     Active Substance: CODEINE
     Indication: Pain
  14. PIPERACILLIN SODIUM\TAZOBACTAM SODIUM [Concomitant]
     Active Substance: PIPERACILLIN SODIUM\TAZOBACTAM SODIUM
     Route: 042
  15. POTASSIUM CHLORIDE [Concomitant]
     Active Substance: POTASSIUM CHLORIDE
     Indication: Blood potassium decreased
     Dosage: 1500 MG PER 2
     Dates: start: 20230908
  16. MAGNESIUM [Concomitant]
     Active Substance: MAGNESIUM
     Indication: Blood magnesium decreased
     Dosage: 120 MG PER 3
  17. ZOPICLONE [Concomitant]
     Active Substance: ZOPICLONE
     Indication: Sleep disorder

REACTIONS (3)
  - Malaise [Fatal]
  - Pneumonia [Recovered/Resolved]
  - Dehydration [Fatal]

NARRATIVE: CASE EVENT DATE: 20230811
